FAERS Safety Report 14068765 (Version 1)
Quarter: 2017Q4

REPORT INFORMATION
  Report Type: Spontaneous
  Country: US (occurrence: US)
  Receive Date: 20171010
  Receipt Date: 20171010
  Transmission Date: 20180321
  Serious: No
  Sender: FDA-Public Use
  Company Number: US-PFIZER INC-2017433877

PATIENT
  Sex: Female

DRUGS (2)
  1. IBRANCE [Suspect]
     Active Substance: PALBOCICLIB
     Dosage: UNK, CYCLIC (21 DAYS ON, 7 DAYS OFF)
  2. IBRANCE [Suspect]
     Active Substance: PALBOCICLIB
     Dosage: 75 MG, CYCLIC (28 DAYS ON, 7 DAYS OFF)
     Dates: start: 201707

REACTIONS (4)
  - Drug prescribing error [Unknown]
  - Fatigue [Unknown]
  - Full blood count decreased [Recovering/Resolving]
  - Inappropriate schedule of drug administration [Unknown]
